FAERS Safety Report 19211677 (Version 1)
Quarter: 2021Q2

REPORT INFORMATION
  Report Type: Report from Study
  Country: GB (occurrence: GB)
  Receive Date: 20210504
  Receipt Date: 20210504
  Transmission Date: 20210717
  Serious: Yes (Hospitalization)
  Sender: FDA-Public Use
  Company Number: GB-SAMSUNG BIOEPIS-SB-2021-07335

PATIENT
  Age: 39 Year
  Sex: Female

DRUGS (2)
  1. BENEPALI [Suspect]
     Active Substance: ETANERCEPT
     Indication: PSORIATIC ARTHROPATHY
     Route: 058
     Dates: start: 20210201
  2. BENEPALI [Suspect]
     Active Substance: ETANERCEPT
     Indication: RHEUMATOID ARTHRITIS

REACTIONS (6)
  - Localised infection [Unknown]
  - Rash [Unknown]
  - Erythema [Unknown]
  - Swelling [Unknown]
  - Rheumatoid arthritis [Unknown]
  - Cellulitis [Unknown]
